FAERS Safety Report 17316472 (Version 6)
Quarter: 2021Q3

REPORT INFORMATION
  Report Type: Report from Study
  Country: DE (occurrence: DE)
  Receive Date: 20200124
  Receipt Date: 20210909
  Transmission Date: 20211014
  Serious: Yes (Hospitalization, Other)
  Sender: FDA-Public Use
  Company Number: DE-MYLANLABS-2020M1001408

PATIENT
  Sex: Female
  Weight: 57 kg

DRUGS (10)
  1. HYDROMORPHONE [Suspect]
     Active Substance: HYDROMORPHONE
     Indication: PAIN
     Dosage: 4 MG, 2X1 DF
     Route: 048
  2. KISQALI [Suspect]
     Active Substance: RIBOCICLIB
     Dosage: 400 MILLIGRAM, QD
     Route: 048
     Dates: start: 20210104
  3. LETROZOLE. [Suspect]
     Active Substance: LETROZOLE
     Dosage: UNK
     Route: 065
  4. KISQALI [Suspect]
     Active Substance: RIBOCICLIB
     Dosage: 400 MILLIGRAM, QD(400 MG, QD (SCHEMA 21 DAYS INTAKE, THAN 7 DAYS PAUSE)
     Route: 048
     Dates: start: 20191014, end: 20200802
  5. KISQALI [Suspect]
     Active Substance: RIBOCICLIB
     Indication: BREAST CANCER METASTATIC
     Dosage: 600 MILLIGRAM, QD(600 MG, QD (SCHEMA 21 DAYS INTAKE, THAN 7 DAYS PAUSE)
     Route: 048
     Dates: start: 20190902, end: 20190922
  6. KISQALI [Suspect]
     Active Substance: RIBOCICLIB
     Dosage: 400 MG (DAILY DOSE) (SCHEMA 21 DAYS INTAKE, THAN 7 DAYS PAUSE)
     Route: 048
     Dates: start: 20200812, end: 20201221
  7. HYDROMORPHONE [Suspect]
     Active Substance: HYDROMORPHONE
     Dosage: UNK
     Route: 065
  8. HYDROMORPHONE [Suspect]
     Active Substance: HYDROMORPHONE
     Dosage: 4 MILLIGRAM, 2X1
     Route: 048
     Dates: start: 20190923
  9. LETROZOLE. [Suspect]
     Active Substance: LETROZOLE
     Indication: BREAST CANCER METASTATIC
     Dosage: 2.5 MILLIGRAM, QD (2.5 MG, QD)
     Route: 048
     Dates: start: 20190902
  10. ORAMORPH [Suspect]
     Active Substance: MORPHINE SULFATE
     Indication: CHEST PAIN
     Dosage: 10 MILLIGRAM (10 MG, UP TO 6X1)
     Route: 048
     Dates: start: 20190904

REACTIONS (8)
  - Skin erosion [Recovered/Resolved]
  - Vomiting [Recovered/Resolved]
  - Chest pain [Recovering/Resolving]
  - Nausea [Recovered/Resolved]
  - Leukopenia [Not Recovered/Not Resolved]
  - Exfoliative rash [Not Recovered/Not Resolved]
  - Pain [Unknown]
  - Constipation [Recovered/Resolved]

NARRATIVE: CASE EVENT DATE: 20190903
